FAERS Safety Report 20473005 (Version 1)
Quarter: 2022Q1

REPORT INFORMATION
  Report Type: Spontaneous
  Country: GB (occurrence: GB)
  Receive Date: 20220215
  Receipt Date: 20220215
  Transmission Date: 20220423
  Serious: No
  Sender: FDA-Public Use
  Company Number: None

PATIENT
  Age: 83 Year
  Sex: Female
  Weight: 75 kg

DRUGS (6)
  1. EZETIMIBE [Suspect]
     Active Substance: EZETIMIBE
     Indication: Product used for unknown indication
     Dosage: 10 MILLIGRAM, QD
     Route: 065
     Dates: start: 20210329, end: 20211005
  2. Cetraben Emollient Cream [Concomitant]
     Indication: Peripheral swelling
     Dosage: APPLY
     Route: 065
     Dates: start: 20210917
  3. COSMOCOL [Concomitant]
     Indication: Constipation
     Dosage: 1-3 SACHETS A DAY
     Route: 048
     Dates: start: 20210827
  4. LANOLIN\LIGHT MINERAL OIL\PARAFFIN [Concomitant]
     Active Substance: LANOLIN\LIGHT MINERAL OIL\PARAFFIN
     Indication: Peripheral swelling
     Dosage: 250 MILLILITER
     Route: 065
     Dates: start: 20210917
  5. FERROUS FUMARATE [Concomitant]
     Active Substance: FERROUS FUMARATE
     Indication: Product used for unknown indication
     Dosage: 210 MILLIGRAM
     Route: 065
     Dates: start: 20210827, end: 20211005
  6. Urea And Lauromacrogols [Concomitant]
     Indication: Peripheral swelling
     Dosage: APPLY
     Route: 065
     Dates: start: 20210917

REACTIONS (1)
  - Myalgia [Recovered/Resolved]

NARRATIVE: CASE EVENT DATE: 20210330
